FAERS Safety Report 16426475 (Version 1)
Quarter: 2019Q2

REPORT INFORMATION
  Report Type: Spontaneous
  Country: US (occurrence: US)
  Receive Date: 20190613
  Receipt Date: 20190613
  Transmission Date: 20190711
  Serious: Yes (Other)
  Sender: FDA-Public Use
  Company Number: US-JNJFOC-20190614828

PATIENT
  Age: 51 Year
  Sex: Female

DRUGS (1)
  1. INVOKANA [Suspect]
     Active Substance: CANAGLIFLOZIN
     Indication: PRODUCT USED FOR UNKNOWN INDICATION
     Route: 048

REACTIONS (4)
  - Toe amputation [Unknown]
  - Necrosis ischaemic [Unknown]
  - Osteomyelitis [Unknown]
  - Skin ulcer [Unknown]

NARRATIVE: CASE EVENT DATE: 20140731
